FAERS Safety Report 8583855-9 (Version None)
Quarter: 2012Q3

REPORT INFORMATION
  Report Type: 
  Country: None (occurrence: None)
  Receive Date: 20120810
  Receipt Date: 20120731
  Transmission Date: 20120928
  Serious: Yes (Hospitalization)
  Sender: FDA-Public Use
  Company Number: US-009507513-1208USA002399

PATIENT

DRUGS (3)
  1. ZOLINZA [Suspect]
     Dosage: 230 MG/M2, QD, CYCLE = 28 DAYS (MAX = 12 CYCLE)
     Route: 048
     Dates: start: 20120608, end: 20120628
  2. ZOLINZA [Suspect]
     Dosage: 230 MG/M2, QD, CYCLE = 28 DAYS (MAX = 12 CYCLE)
     Route: 048
     Dates: start: 20120630, end: 20120705
  3. ZOLINZA [Suspect]
     Indication: BRAIN STEM GLIOMA
     Dosage: 230 MG/M2, ON DAYS 1-5 WEEKLY, CYCLE = 6 WEEKS
     Route: 048
     Dates: start: 20120402

REACTIONS (1)
  - ABDOMINAL PAIN [None]
